FAERS Safety Report 7576675-5 (Version None)
Quarter: 2011Q2

REPORT INFORMATION
  Report Type: 
  Country: None (occurrence: None)
  Receive Date: 20110628
  Receipt Date: 20110614
  Transmission Date: 20111010
  Serious: Yes (Hospitalization)
  Sender: FDA-Public Use
  Company Number: DE-EISAI INC-E7389-01283-SPO-DE

PATIENT
  Sex: Female
  Weight: 70 kg

DRUGS (1)
  1. HALAVEN [Suspect]
     Route: 041
     Dates: start: 20110606

REACTIONS (3)
  - DYSPHAGIA [None]
  - STOMATITIS [None]
  - DIARRHOEA [None]
